FAERS Safety Report 9826212 (Version 1)
Quarter: 2013Q4

REPORT INFORMATION
  Report Type: Spontaneous
  Country: US (occurrence: None)
  Receive Date: 20131223
  Receipt Date: 20131223
  Transmission Date: 20140711
  Serious: Yes (Other)
  Sender: FDA-Public Use
  Company Number: 220642LEO

PATIENT
  Age: 74 Year
  Sex: Male

DRUGS (7)
  1. PICATO [Suspect]
     Indication: SKIN CANCER
     Dosage: 1 IN 1 D, TOPICAL
     Route: 061
     Dates: start: 20130216
  2. NEURONTIN (GABAPENTIN)) [Concomitant]
  3. OXYCONTIN (OXYCODONE HYDROCHLORIDE) [Concomitant]
  4. ALLOPURINOL (ALLOPURINOL) [Concomitant]
  5. PREVACID (LANSOPRAZOLE) [Concomitant]
  6. WARFARIN (WARFARIN) [Concomitant]
  7. TEKTURNA (ALISKIREN) [Concomitant]

REACTIONS (1)
  - Application site vesicles [None]
